FAERS Safety Report 9187421 (Version 2)
Quarter: 2013Q2

REPORT INFORMATION
  Report Type: Report from Study
  Country: DE (occurrence: DE)
  Receive Date: 20130325
  Receipt Date: 20130418
  Transmission Date: 20140414
  Serious: Yes (Hospitalization)
  Sender: FDA-Public Use
  Company Number: DE-ROCHE-1206223

PATIENT
  Age: 47 Year
  Sex: Female
  Weight: 54 kg

DRUGS (5)
  1. BEVACIZUMAB [Suspect]
     Indication: OVARIAN CANCER
     Dosage: 810 MG, LAST DOSE PRIOR TO SAE ON 06/MAR/2013
     Route: 042
     Dates: start: 20130120
  2. CARBOPLATIN [Suspect]
     Indication: OVARIAN CANCER
     Dosage: 677.4 MG LAST DOSE PRIOR TO SAE ON 06/MAR/2013
     Route: 042
     Dates: start: 20130120
  3. PACLITAXEL [Suspect]
     Indication: OVARIAN CANCER
     Dosage: 290.5 MG, LAST DOSE PRIOR TO SAE ON 06/MAR/2013
     Route: 042
     Dates: start: 20130120
  4. MIRTAZAPINE [Concomitant]
     Indication: DEPRESSED MOOD
     Dosage: 30 MG, LAST DOSE PRIOR TO SAE ON 20/MAR/2013
     Route: 048
     Dates: start: 20130102
  5. VENLAFAXINE HCL [Concomitant]
     Indication: DEPRESSED MOOD
     Dosage: 75 MG,LAST DOSE PRIOR TO SAE ON 20/MAR/2013
     Route: 048
     Dates: start: 20130103

REACTIONS (1)
  - Ileus [Recovered/Resolved]
